FAERS Safety Report 12384076 (Version 1)
Quarter: 2016Q2

REPORT INFORMATION
  Report Type: Spontaneous
  Country: MY (occurrence: MY)
  Receive Date: 20160519
  Receipt Date: 20160519
  Transmission Date: 20160815
  Serious: Yes (Other)
  Sender: FDA-Public Use
  Company Number: MY-ROCHE-1760563

PATIENT
  Age: 53 Year
  Sex: Male

DRUGS (2)
  1. LUCENTIS [Suspect]
     Active Substance: RANIBIZUMAB
     Indication: IRIS NEOVASCULARISATION
     Dosage: 0.5 MG, UNK (RIGHT EYE) SOLUTION FOR INJECTION
     Route: 031
  2. POVIDONE-IODINE. [Concomitant]
     Active Substance: POVIDONE-IODINE
     Indication: PRODUCT USED FOR UNKNOWN INDICATION
     Route: 065

REACTIONS (3)
  - Disease recurrence [Unknown]
  - Hyphaema [Unknown]
  - Hemiparesis [Unknown]
